FAERS Safety Report 11654527 (Version 3)
Quarter: 2015Q4

REPORT INFORMATION
  Report Type: Report from Study
  Country: JP (occurrence: JP)
  Receive Date: 20151023
  Receipt Date: 20151228
  Transmission Date: 20160304
  Serious: Yes (Other)
  Sender: FDA-Public Use
  Company Number: JP-009507513-1502JPN003887

PATIENT
  Sex: Female

DRUGS (15)
  1. DIAZOXIDE [Suspect]
     Active Substance: DIAZOXIDE
     Dosage: 60 MG, QD
     Route: 048
     Dates: start: 20061206, end: 20061213
  2. DIAZOXIDE [Suspect]
     Active Substance: DIAZOXIDE
     Dosage: 100 MG, QD
     Route: 048
     Dates: start: 20070203, end: 20070709
  3. DIAZOXIDE [Suspect]
     Active Substance: DIAZOXIDE
     Dosage: 70 MG, TID
     Route: 048
     Dates: start: 20091020, end: 20101017
  4. DIAZOXIDE [Suspect]
     Active Substance: DIAZOXIDE
     Dosage: 48 MG, QD
     Route: 048
     Dates: start: 20061031, end: 20061205
  5. DIAZOXIDE [Suspect]
     Active Substance: DIAZOXIDE
     Dosage: 80 MG, QD
     Route: 048
     Dates: start: 20061214, end: 20070202
  6. DIAZOXIDE [Suspect]
     Active Substance: DIAZOXIDE
     Dosage: 120 MG, QD
     Route: 048
     Dates: start: 20070710, end: 20080110
  7. DIAZOXIDE [Suspect]
     Active Substance: DIAZOXIDE
     Dosage: 140 MG, QD
     Route: 048
     Dates: start: 20080111, end: 20080806
  8. DIAZOXIDE [Suspect]
     Active Substance: DIAZOXIDE
     Dosage: 83 MG, TID
     Route: 048
     Dates: start: 20110418, end: 20111226
  9. DIAZOXIDE [Suspect]
     Active Substance: DIAZOXIDE
     Dosage: 53 MG, TID
     Route: 048
     Dates: start: 20080807, end: 20081215
  10. DIAZOXIDE [Suspect]
     Active Substance: DIAZOXIDE
     Indication: HYPOGLYCAEMIA
     Dosage: 30. MG, QD
     Route: 048
     Dates: start: 20061026, end: 20061030
  11. DIAZOXIDE [Suspect]
     Active Substance: DIAZOXIDE
     Dosage: 66 MG, TID
     Route: 048
     Dates: start: 20090313, end: 20091019
  12. DIAZOXIDE [Suspect]
     Active Substance: DIAZOXIDE
     Dosage: 77 MG, TID
     Route: 048
     Dates: start: 20101018, end: 20110417
  13. DIAZOXIDE [Suspect]
     Active Substance: DIAZOXIDE
     Dosage: 90 MG, TID
     Route: 048
     Dates: start: 20111227, end: 20130816
  14. DIAZOXIDE [Suspect]
     Active Substance: DIAZOXIDE
     Dosage: 60 MG, TID
     Route: 048
     Dates: start: 20081216, end: 20090312
  15. DIAZOXIDE [Suspect]
     Active Substance: DIAZOXIDE
     Dosage: 100 MG, TID
     Route: 048
     Dates: start: 20130817

REACTIONS (4)
  - Hypertrichosis [Not Recovered/Not Resolved]
  - Haematuria [Unknown]
  - Tibia fracture [Unknown]
  - Hypoglycaemic seizure [Recovered/Resolved]

NARRATIVE: CASE EVENT DATE: 20130516
